FAERS Safety Report 7478407-8 (Version None)
Quarter: 2011Q2

REPORT INFORMATION
  Report Type: 
  Country: None (occurrence: None)
  Receive Date: 20110513
  Receipt Date: 20100714
  Transmission Date: 20111010
  Serious: No
  Sender: FDA-Public Use
  Company Number: US-PFIZER INC-2010088768

PATIENT
  Age: 83 Year
  Sex: Male
  Weight: 78.912 kg

DRUGS (5)
  1. FOSAMAX [Concomitant]
     Dosage: UNK
  2. PLAVIX [Concomitant]
     Dosage: UNK
  3. CELEBREX [Suspect]
     Indication: BACK PAIN
     Dosage: 200 MG, 1X/DAY
     Route: 048
     Dates: start: 20100401, end: 20100711
  4. ZOCOR [Concomitant]
     Indication: BLOOD CHOLESTEROL INCREASED
     Dosage: 80 MG, UNK
  5. ACETYLSALICYLIC ACID [Concomitant]
     Dosage: 80 MG, UNK

REACTIONS (2)
  - DRUG INEFFECTIVE [None]
  - BACK PAIN [None]
